FAERS Safety Report 8508047-0 (Version None)
Quarter: 2012Q3

REPORT INFORMATION
  Report Type: 
  Country: None (occurrence: None)
  Receive Date: 20120713
  Receipt Date: 20120709
  Transmission Date: 20120928
  Serious: Yes (Other)
  Sender: FDA-Public Use
  Company Number: PHEH2012US012214

PATIENT
  Sex: Female

DRUGS (9)
  1. PHENOBARBITAL [Concomitant]
  2. AFINITOR [Suspect]
     Indication: TUBEROUS SCLEROSIS
     Dosage: 10 MG, DAILY
     Route: 048
     Dates: start: 20120514
  3. ALBUTEROL [Concomitant]
  4. LORAZEPAM [Concomitant]
  5. PROZAC [Concomitant]
  6. LEVOTHYROXINE SODIUM [Concomitant]
  7. LISINOPRIL [Concomitant]
  8. SIMVASTATIN [Concomitant]
  9. AMBIEN [Concomitant]

REACTIONS (4)
  - DECREASED APPETITE [None]
  - ANGIOMYOLIPOMA [None]
  - MENTAL IMPAIRMENT [None]
  - FATIGUE [None]
